FAERS Safety Report 16013502 (Version 3)
Quarter: 2019Q2

REPORT INFORMATION
  Report Type: Spontaneous
  Country: JP (occurrence: JP)
  Receive Date: 20190227
  Receipt Date: 20190604
  Transmission Date: 20190711
  Serious: Yes (Hospitalization)
  Sender: FDA-Public Use
  Company Number: JP-PFIZER INC-2019081459

PATIENT
  Age: 76 Year
  Sex: Female

DRUGS (11)
  1. LORBRENA [Suspect]
     Active Substance: LORLATINIB
     Indication: LUNG ADENOCARCINOMA
     Dosage: 100 MG, 1X/DAY
     Route: 048
     Dates: start: 20190116, end: 20190215
  2. BROTIZOLAM [Concomitant]
     Active Substance: BROTIZOLAM
     Indication: INSOMNIA
     Dosage: 0.25 MG, 1X/DAY
     Route: 048
     Dates: start: 201612
  3. OXYCONTIN [Concomitant]
     Active Substance: OXYCODONE HYDROCHLORIDE
     Indication: CANCER PAIN
     Dosage: 10 MG, 2X/DAY
     Route: 048
     Dates: start: 201612
  4. SYMPROIC [Concomitant]
     Active Substance: NALDEMEDINE
     Indication: CONSTIPATION
     Dosage: 0.2 MG, 1X/DAY
     Route: 048
     Dates: start: 201612
  5. NIFEDIPINE. [Concomitant]
     Active Substance: NIFEDIPINE
     Indication: HYPERTENSION
     Dosage: 20 MG, 1X/DAY
     Route: 048
     Dates: start: 201612
  6. THYRADIN-S [Concomitant]
     Active Substance: LEVOTHYROXINE
     Indication: HYPOTHYROIDISM
     Dosage: 25 UG, 1X/DAY
     Route: 048
     Dates: start: 201802
  7. MAGMITT [Concomitant]
     Active Substance: MAGNESIUM OXIDE
     Indication: CONSTIPATION
     Dosage: 330 MG, 3X/DAY
     Route: 048
     Dates: start: 201612
  8. ATORVASTATIN [Concomitant]
     Active Substance: ATORVASTATIN
     Indication: DYSLIPIDAEMIA
     Dosage: 10 MG, 1X/DAY
     Route: 048
     Dates: start: 201705
  9. DENOTAS CHEWABLE [Concomitant]
     Active Substance: CALCIUM CARBONATE\CHOLECALCIFEROL\MAGNESIUM CARBONATE
     Indication: HYPOCALCAEMIA
     Dosage: 2 TABLET, 1X/DAY
     Route: 048
     Dates: start: 201612
  10. CALONAL [Concomitant]
     Active Substance: ACETAMINOPHEN
     Indication: CANCER PAIN
     Dosage: 500 MG, 3X/DAY
     Route: 048
     Dates: start: 201612
  11. KALIMATE [Concomitant]
     Active Substance: CALCIUM POLYSTYRENE SULFONATE
     Indication: HYPERKALAEMIA
     Dosage: 1 DF, 3X/DAY
     Route: 048
     Dates: start: 201705

REACTIONS (6)
  - Dyspnoea [Unknown]
  - Eyelid oedema [Unknown]
  - Protein urine [Recovering/Resolving]
  - Weight decreased [Recovering/Resolving]
  - Oedema peripheral [Unknown]
  - Pleural effusion [Unknown]

NARRATIVE: CASE EVENT DATE: 20190201
